FAERS Safety Report 5424810-7 (Version None)
Quarter: 2007Q3

REPORT INFORMATION
  Report Type: 
  Country: None (occurrence: None)
  Receive Date: 20070822
  Receipt Date: 20070713
  Transmission Date: 20080115
  Serious: Yes (Death, Hospitalization)
  Sender: FDA-Public Use
  Company Number: 2007US001940

PATIENT
  Age: 54 Year
  Sex: Male

DRUGS (10)
  1. PROGRAF [Suspect]
     Indication: PROPHYLAXIS AGAINST TRANSPLANT REJECTION
  2. MYCOPHENOLATE MOFETIL [Concomitant]
  3. PREDNISONE TAB [Concomitant]
  4. CIPROFLOXACIN [Concomitant]
  5. CEFEPIME [Concomitant]
  6. PIPERACILLIN W/TAZOBACTAM (PIPERACILLIN, TAZOBACTAM) [Concomitant]
  7. SULFAMETHOXAZOLE AND TRIMETHOPRIM [Concomitant]
  8. FLUCONAZOLE [Concomitant]
  9. LAMIVUDINE [Concomitant]
  10. HEPATITIS B IMMUNE GLOBULIN (IMMUNOGLOBULIN ANTIHEPATITIS B) [Concomitant]

REACTIONS (7)
  - CANDIDIASIS [None]
  - CLOSTRIDIUM DIFFICILE COLITIS [None]
  - CYTOMEGALOVIRUS HEPATITIS [None]
  - CYTOMEGALOVIRUS VIRAEMIA [None]
  - KIDNEY TRANSPLANT REJECTION [None]
  - PNEUMONIA [None]
  - RESPIRATORY FAILURE [None]
